FAERS Safety Report 8980403 (Version 1)
Quarter: 2012Q4

REPORT INFORMATION
  Report Type: 
  Country: US (occurrence: US)
  Receive Date: 20121221
  Receipt Date: 20121221
  Transmission Date: 20130627
  Serious: Yes (Other)
  Sender: FDA-Public Use
  Company Number: PHHY2012US118021

PATIENT
  Sex: Male

DRUGS (2)
  1. ARGININE [Suspect]
     Dosage: 5 ml/kg, UNK
     Route: 042
  2. CLONIDINE [Suspect]
     Dosage: 5 ug/kg, UNK

REACTIONS (2)
  - Haematuria [Recovered/Resolved]
  - Hypotension [Unknown]
